FAERS Safety Report 8141923-X (Version None)
Quarter: 2012Q1

REPORT INFORMATION
  Report Type: 
  Country: None (occurrence: None)
  Receive Date: 20120216
  Receipt Date: 20120209
  Transmission Date: 20120608
  Serious: Yes (Hospitalization, Other)
  Sender: FDA-Public Use
  Company Number: US-VIIV HEALTHCARE LIMITED-A0965271A

PATIENT
  Age: 32 Year
  Sex: Female

DRUGS (3)
  1. COMBIVIR [Suspect]
     Indication: PROPHYLAXIS
     Route: 048
  2. NORVIR [Concomitant]
  3. REYATAZ [Concomitant]

REACTIONS (1)
  - GASTROINTESTINAL DISORDER [None]
